FAERS Safety Report 8311710-8 (Version None)
Quarter: 2012Q2

REPORT INFORMATION
  Report Type: 
  Country: None (occurrence: None)
  Receive Date: 20120425
  Receipt Date: 20120418
  Transmission Date: 20120825
  Serious: No
  Sender: FDA-Public Use
  Company Number: US-PFIZER INC-2012099865

PATIENT
  Age: 65 Year
  Sex: Female

DRUGS (3)
  1. LYRICA [Suspect]
     Indication: FIBROMYALGIA
     Dosage: UNK
  2. PERCOCET [Concomitant]
  3. SAVELLA [Concomitant]

REACTIONS (3)
  - DRUG INEFFECTIVE [None]
  - MALAISE [None]
  - PAIN [None]
